FAERS Safety Report 17756663 (Version 3)
Quarter: 2020Q3

REPORT INFORMATION
  Report Type: Report from Study
  Country: US (occurrence: US)
  Receive Date: 20200507
  Receipt Date: 20200708
  Transmission Date: 20201102
  Serious: Yes (Other)
  Sender: FDA-Public Use
  Company Number: US-GLAXOSMITHKLINE-US2020AMR068451

PATIENT
  Age: 69 Year
  Sex: Female

DRUGS (4)
  1. AVASTIN (ATORVASTATIN) [Suspect]
     Active Substance: ATORVASTATIN CALCIUM
     Indication: PRODUCT USED FOR UNKNOWN INDICATION
     Dosage: EVERY MONTH
  2. NIRAPARIB [Suspect]
     Active Substance: NIRAPARIB
     Dosage: 200 MG, QD
     Dates: start: 20200501
  3. NIRAPARIB [Suspect]
     Active Substance: NIRAPARIB
     Indication: OVARIAN CANCER
     Dosage: 300 MG, DAILY
     Dates: start: 20200407
  4. GEMZAR [Concomitant]
     Active Substance: GEMCITABINE HYDROCHLORIDE
     Indication: OVARIAN CANCER
     Dosage: UNK
     Dates: start: 202006

REACTIONS (13)
  - Fatigue [Not Recovered/Not Resolved]
  - Carbohydrate antigen 125 increased [Not Recovered/Not Resolved]
  - Blood creatinine increased [Unknown]
  - Stomatitis [Unknown]
  - Constipation [Not Recovered/Not Resolved]
  - Blood pressure increased [Unknown]
  - Condition aggravated [Unknown]
  - Osteoporosis [Unknown]
  - Social problem [Unknown]
  - Deafness [Unknown]
  - Blood calcium increased [Unknown]
  - Nausea [Not Recovered/Not Resolved]
  - Decreased appetite [Unknown]
